FAERS Safety Report 7804258-8 (Version None)
Quarter: 2011Q4

REPORT INFORMATION
  Report Type: 
  Country: None (occurrence: None)
  Receive Date: 20111010
  Receipt Date: 20110926
  Transmission Date: 20120403
  Serious: Yes (Hospitalization)
  Sender: FDA-Public Use
  Company Number: PHHY2011MX87142

PATIENT
  Sex: Female

DRUGS (3)
  1. EXFORGE [Suspect]
     Indication: HYPERTENSION
     Dosage: 1 DF, PER DAY
     Dates: start: 20110711
  2. LANTUS [Concomitant]
     Dosage: 30 IU, PER DAY
     Dates: start: 20110728
  3. METFORMIN HYDROCHLORIDE [Concomitant]
     Dosage: 2 DF, PER DAY

REACTIONS (3)
  - RENAL FAILURE ACUTE [None]
  - DEHYDRATION [None]
  - URINARY TRACT INFECTION [None]
